FAERS Safety Report 5392769-7 (Version None)
Quarter: 2007Q3

REPORT INFORMATION
  Report Type: 
  Country: None (occurrence: None)
  Receive Date: 20070720
  Receipt Date: 20070710
  Transmission Date: 20080115
  Serious: Yes (Other)
  Sender: FDA-Public Use
  Company Number: FR-PFIZER INC-2007049757

PATIENT
  Sex: Female
  Weight: 55 kg

DRUGS (2)
  1. FELDENE [Suspect]
     Indication: TENDONITIS
     Route: 048
     Dates: start: 20070608, end: 20070601
  2. SOLU-MEDROL [Concomitant]
     Indication: TENDONITIS
     Route: 048

REACTIONS (1)
  - COUGH [None]
